FAERS Safety Report 10511031 (Version 12)
Quarter: 2016Q2

REPORT INFORMATION
  Report Type: Spontaneous
  Country: US (occurrence: US)
  Receive Date: 20141010
  Receipt Date: 20160616
  Transmission Date: 20160815
  Serious: No
  Sender: FDA-Public Use
  Company Number: US-PFIZER INC-2014276995

PATIENT
  Age: 58 Year
  Sex: Female
  Weight: 125 kg

DRUGS (2)
  1. LYRICA [Suspect]
     Active Substance: PREGABALIN
     Dosage: 200 MG, 3X/DAY
  2. LYRICA [Suspect]
     Active Substance: PREGABALIN
     Indication: DIABETIC NEUROPATHY
     Dosage: 100 MG, 3X/DAY
     Dates: start: 20140808

REACTIONS (13)
  - Weight increased [Unknown]
  - Intentional product misuse [Unknown]
  - Blood pressure increased [Unknown]
  - Insomnia [Unknown]
  - Therapeutic response unexpected [Unknown]
  - Impaired work ability [Unknown]
  - Blister [Unknown]
  - Fluid retention [Unknown]
  - Pain in extremity [Unknown]
  - Increased appetite [Not Recovered/Not Resolved]
  - Blood pressure decreased [Unknown]
  - Anxiety [Unknown]
  - Drug effect incomplete [Unknown]

NARRATIVE: CASE EVENT DATE: 20140901
